FAERS Safety Report 7574674-0 (Version None)
Quarter: 2011Q2

REPORT INFORMATION
  Report Type: 
  Country: None (occurrence: None)
  Receive Date: 20110627
  Receipt Date: 20110609
  Transmission Date: 20111010
  Serious: Yes (Other)
  Sender: FDA-Public Use
  Company Number: NL-BAYER-2011-031347

PATIENT
  Sex: Female

DRUGS (1)
  1. BETASERON [Suspect]
     Indication: MULTIPLE SCLEROSIS
     Dosage: UNK
     Dates: start: 20100929, end: 20110301

REACTIONS (28)
  - CHILLS [None]
  - DYSPNOEA [None]
  - HAIR DISORDER [None]
  - MUSCULOSKELETAL STIFFNESS [None]
  - BACK PAIN [None]
  - FATIGUE [None]
  - VISUAL IMPAIRMENT [None]
  - EAR DISCOMFORT [None]
  - PAIN IN EXTREMITY [None]
  - CHEST PAIN [None]
  - MUSCULOSKELETAL CHEST PAIN [None]
  - HEADACHE [None]
  - DIZZINESS [None]
  - FEELING ABNORMAL [None]
  - EAR PAIN [None]
  - GAIT DISTURBANCE [None]
  - INFLUENZA LIKE ILLNESS [None]
  - MYALGIA [None]
  - NAUSEA [None]
  - INSOMNIA [None]
  - CONJUNCTIVITIS [None]
  - PALPITATIONS [None]
  - LYMPHOCYTE COUNT INCREASED [None]
  - MUSCULAR WEAKNESS [None]
  - MALAISE [None]
  - HYPERHIDROSIS [None]
  - PARAESTHESIA [None]
  - PYREXIA [None]
